FAERS Safety Report 11143280 (Version 3)
Quarter: 2015Q2

REPORT INFORMATION
  Report Type: Spontaneous
  Country: CA (occurrence: CA)
  Receive Date: 20150526
  Receipt Date: 20150611
  Transmission Date: 20150821
  Serious: Yes (Other)
  Sender: FDA-Public Use
  Company Number: CA-BEH-2015051230

PATIENT
  Age: 35 Year
  Sex: Male
  Weight: 70.1 kg

DRUGS (5)
  1. KETAMINE [Suspect]
     Active Substance: KETAMINE
     Indication: ANAESTHESIA
     Dosage: 0.5 UG/MIN
     Route: 042
     Dates: start: 20150206, end: 20150206
  2. ROCURONIUM [Suspect]
     Active Substance: ROCURONIUM BROMIDE
     Indication: ANAESTHESIA
     Dosage: ONLY ONE DOSE AT BEGINNING OF SURGERY 0505UG PER KG PER MINUTE
     Dates: start: 20150206, end: 20150206
  3. FENTANYL. [Concomitant]
     Active Substance: FENTANYL
     Dosage: 0.05 MCG/KG/MIN
     Route: 042
     Dates: start: 20150206
  4. ALBUMIN 5% / ALBUREX [Suspect]
     Active Substance: ALBUMIN (HUMAN)
     Route: 042
     Dates: start: 20150206
  5. ALBUMIN 5% / ALBUREX [Suspect]
     Active Substance: ALBUMIN (HUMAN)
     Indication: VOLUME BLOOD
     Route: 042
     Dates: start: 20150206

REACTIONS (6)
  - Hypotension [Recovered/Resolved]
  - Erythema [Recovered/Resolved]
  - Shock [Recovered/Resolved]
  - Peripheral swelling [Recovered/Resolved]
  - Anaphylactic reaction [Recovered/Resolved]
  - Tachycardia [Recovered/Resolved]

NARRATIVE: CASE EVENT DATE: 20150206
